FAERS Safety Report 11335426 (Version 2)
Quarter: 2015Q3

REPORT INFORMATION
  Report Type: Report from Study
  Country: DE (occurrence: DE)
  Receive Date: 20150804
  Receipt Date: 20150818
  Transmission Date: 20151125
  Serious: Yes (Death)
  Sender: FDA-Public Use
  Company Number: DE-BEH-2015052813

PATIENT
  Age: 79 Year
  Sex: Female
  Weight: 89 kg

DRUGS (16)
  1. MIRTAZAPINE. [Concomitant]
     Active Substance: MIRTAZAPINE
  2. PRIVIGEN [Suspect]
     Active Substance: HUMAN IMMUNOGLOBULIN G
     Indication: IMMUNODEFICIENCY
     Dosage: INFUSION RATE MIN. 0.5 - MAX. 12 ML/MIN
     Route: 042
     Dates: start: 20140827, end: 20140827
  3. ALLOPURINOL. [Concomitant]
     Active Substance: ALLOPURINOL
  4. SIMVASTATIN. [Concomitant]
     Active Substance: SIMVASTATIN
  5. NOVORAPID [Concomitant]
     Active Substance: INSULIN ASPART
  6. VIANI [Concomitant]
     Active Substance: FLUTICASONE PROPIONATE\SALMETEROL XINAFOATE
  7. NOVAMINSULFON [Concomitant]
     Active Substance: METAMIZOLE
  8. BISOPROLOL [Concomitant]
     Active Substance: BISOPROLOL
  9. PROTAPHANE [Concomitant]
     Active Substance: INSULIN HUMAN
  10. GLUCOCORTICOIDS [Concomitant]
     Active Substance: UNSPECIFIED INGREDIENT
  11. OMEPRAZOLE. [Concomitant]
     Active Substance: OMEPRAZOLE
  12. CALCIDEOS [Concomitant]
  13. RAMIPRIL. [Concomitant]
     Active Substance: RAMIPRIL
  14. PRIVIGEN [Suspect]
     Active Substance: HUMAN IMMUNOGLOBULIN G
     Indication: IMMUNODEFICIENCY
     Dosage: INFUSION RATE MIN. 0.5 - MAX. 12 ML/MIN
     Route: 042
     Dates: start: 20140827, end: 20140827
  15. THYRONAJOD [Concomitant]
     Active Substance: LEVOTHYROXINE SODIUM\POTASSIUM IODIDE
  16. TORASEMIDE [Concomitant]
     Active Substance: TORSEMIDE

REACTIONS (1)
  - Death [Fatal]
